FAERS Safety Report 9743109 (Version 2)
Quarter: 2013Q4

REPORT INFORMATION
  Report Type: Spontaneous
  Country: US (occurrence: US)
  Receive Date: 20131210
  Receipt Date: 20131216
  Transmission Date: 20140711
  Serious: Yes (Other)
  Sender: FDA-Public Use
  Company Number: US-TEVA-378697USA

PATIENT
  Age: 34 Year
  Sex: Female
  Weight: 49.49 kg

DRUGS (1)
  1. PARAGARD 380A [Suspect]
     Indication: MENORRHAGIA
     Route: 015
     Dates: start: 20090416, end: 20121212

REACTIONS (4)
  - Embedded device [Recovering/Resolving]
  - Medical device complication [Recovering/Resolving]
  - Menorrhagia [Recovered/Resolved]
  - Off label use [Unknown]
